FAERS Safety Report 9770439 (Version 2)
Quarter: 2014Q1

REPORT INFORMATION
  Report Type: Spontaneous
  Country: US (occurrence: US)
  Receive Date: 20131218
  Receipt Date: 20140110
  Transmission Date: 20141002
  Serious: No
  Sender: FDA-Public Use
  Company Number: US-TEVA-450782USA

PATIENT
  Sex: 0

DRUGS (2)
  1. PROAIR HFA [Suspect]
  2. PROVENTIL [Concomitant]

REACTIONS (2)
  - Drug ineffective [Recovered/Resolved with Sequelae]
  - Dyspnoea [Unknown]
